FAERS Safety Report 7898835 (Version 3)
Quarter: 2012Q4

REPORT INFORMATION
  Report Type: Report from Study
  Country: US (occurrence: US)
  Receive Date: 20110414
  Receipt Date: 20121120
  Transmission Date: 20130627
  Serious: Yes (Hospitalization, Other)
  Sender: FDA-Public Use
  Company Number: US-BRISTOL-MYERS SQUIBB COMPANY-15661846

PATIENT
  Age: 70 Year
  Sex: Female
  Weight: 59 kg

DRUGS (17)
  1. CISPLATIN [Suspect]
     Indication: MULTIPLE MYELOMA
     Route: 042
     Dates: start: 20101123, end: 20101126
  2. CYCLOPHOSPHAMIDE [Suspect]
     Indication: MULTIPLE MYELOMA
     Route: 042
     Dates: start: 20101123, end: 20101126
  3. ETOPOSIDE [Suspect]
     Indication: MULTIPLE MYELOMA
     Route: 042
     Dates: start: 20101123, end: 20101126
  4. DEXAMETHASONE [Suspect]
     Indication: MULTIPLE MYELOMA
     Dosage: 25Oct10-04Nov10;20mg;day 8,11,15,18, every 3 weeks(oral)
     Route: 042
     Dates: start: 20101123, end: 20101127
  5. BORTEZOMIB [Concomitant]
     Indication: MULTIPLE MYELOMA
     Dosage: day 8,11,15,18, every 3 weeks
     Route: 042
     Dates: start: 20101025, end: 20101104
  6. ACYCLOVIR [Concomitant]
     Indication: INFECTION
     Dosage: Injection
     Dates: start: 20100108
  7. DARBEPOETIN ALFA [Concomitant]
     Indication: ANAEMIA
     Dates: start: 20100108
  8. FAMOTIDINE [Concomitant]
     Indication: GASTROOESOPHAGEAL REFLUX DISEASE
     Dates: start: 20100108
  9. FLUCONAZOLE [Concomitant]
     Indication: INFECTION
     Dosage: Injection
     Dates: start: 20100108
  10. LIDOCAINE [Concomitant]
     Indication: PAIN
     Dates: start: 20101018
  11. OXYCODONE [Concomitant]
     Indication: PAIN
     Dates: start: 20101025
  12. PROCHLORPERAZINE MALEATE [Concomitant]
     Indication: NAUSEA
     Dates: start: 20100108
  13. ZOLEDRONIC ACID [Concomitant]
     Indication: BONE DISORDER
     Dates: start: 2009
  14. TYLENOL + CODEINE NO. 3 [Concomitant]
     Indication: PAIN
     Dates: start: 20101018, end: 20101130
  15. BICITRA [Concomitant]
     Indication: PH URINE DECREASED
     Dates: start: 20101122, end: 20101130
  16. LEVAQUIN [Concomitant]
     Indication: URINARY TRACT INFECTION
     Dates: start: 20101117, end: 20101122
  17. ZITHROMAX [Concomitant]
     Indication: UPPER RESPIRATORY TRACT INFECTION
     Dates: start: 20101124, end: 20101126

REACTIONS (4)
  - Pancytopenia [Unknown]
  - Pneumonia [Unknown]
  - Confusional state [Recovered/Resolved]
  - Asthenia [Recovered/Resolved]
